FAERS Safety Report 5764024-4 (Version None)
Quarter: 2008Q2

REPORT INFORMATION
  Report Type: 
  Country: None (occurrence: None)
  Receive Date: 20080609
  Receipt Date: 20080508
  Transmission Date: 20081010
  Serious: No
  Sender: FDA-Public Use
  Company Number: 002#1#2008-00396

PATIENT
  Sex: Female

DRUGS (10)
  1. NEUPRO [Suspect]
     Indication: RESTLESS LEGS SYNDROME
     Dosage: 6MG/24H, 1 IN 1 D, TRANSDERMAL
     Route: 062
     Dates: start: 20070901
  2. TEGRETOL-XR [Concomitant]
  3. PROCARDIA XL [Concomitant]
  4. ATENOLOL [Concomitant]
  5. PREMARIN [Concomitant]
  6. LEVOXYL [Concomitant]
  7. ASPIRIN [Concomitant]
  8. TASMAR [Concomitant]
  9. ZYRTEC [Concomitant]
  10. REQUIP [Concomitant]

REACTIONS (1)
  - OFF LABEL USE [None]
